FAERS Safety Report 7750055-1 (Version None)
Quarter: 2011Q3

REPORT INFORMATION
  Report Type: 
  Country: None (occurrence: None)
  Receive Date: 20110912
  Receipt Date: 20110902
  Transmission Date: 20111222
  Serious: Yes (Hospitalization)
  Sender: FDA-Public Use
  Company Number: 2011SP034187

PATIENT
  Age: 70 Year
  Sex: Female

DRUGS (3)
  1. ABILIFY [Concomitant]
  2. SYCREST (ASENAPINE /05706901/) [Suspect]
     Indication: MANIA
     Dosage: 10 MG;BID;
     Dates: start: 20110531, end: 20110601
  3. CLOZAPINE [Concomitant]

REACTIONS (5)
  - DIZZINESS [None]
  - DISORIENTATION [None]
  - CONFUSIONAL STATE [None]
  - DELIRIUM [None]
  - INAPPROPRIATE AFFECT [None]
